FAERS Safety Report 8337887-6 (Version None)
Quarter: 2012Q2

REPORT INFORMATION
  Report Type: 
  Country: None (occurrence: None)
  Receive Date: 20120504
  Receipt Date: 20120424
  Transmission Date: 20120825
  Serious: Yes (Hospitalization, Other)
  Sender: FDA-Public Use
  Company Number: US-ELI_LILLY_AND_COMPANY-US201012002615

PATIENT
  Sex: Male

DRUGS (1)
  1. FORTEO [Suspect]
     Dosage: 20 UG, DAILY (1/D)
     Route: 058
     Dates: start: 20100427

REACTIONS (7)
  - PHARYNGITIS [None]
  - LOWER LIMB FRACTURE [None]
  - UPPER LIMB FRACTURE [None]
  - DYSPHONIA [None]
  - HIP FRACTURE [None]
  - PNEUMONIA [None]
  - FALL [None]
